FAERS Safety Report 21033049 (Version 3)
Quarter: 2022Q3

REPORT INFORMATION
  Report Type: Report from Study
  Country: US (occurrence: US)
  Receive Date: 20220701
  Receipt Date: 20220917
  Transmission Date: 20221027
  Serious: Yes (Other)
  Sender: FDA-Public Use
  Company Number: US-NOVARTISPH-NVSC2022US146868

PATIENT
  Sex: Male

DRUGS (1)
  1. ENTRESTO [Suspect]
     Active Substance: SACUBITRIL\VALSARTAN
     Indication: Product used for unknown indication
     Dosage: 1 DOSAGE FORM, BID (24/26MG)
     Route: 048
     Dates: start: 20220609

REACTIONS (12)
  - Cardiac failure [Recovering/Resolving]
  - Obsessive-compulsive disorder [Unknown]
  - Hunger [Unknown]
  - Depression [Unknown]
  - Panic disorder [Unknown]
  - Anxiety [Unknown]
  - Back pain [Unknown]
  - Feeling abnormal [Unknown]
  - Feeling hot [Unknown]
  - Hyperhidrosis [Unknown]
  - Dizziness [Unknown]
  - Abdominal discomfort [Unknown]
